FAERS Safety Report 4713903-5 (Version None)
Quarter: 2005Q3

REPORT INFORMATION
  Report Type: 
  Country: None (occurrence: None)
  Receive Date: 20050712
  Receipt Date: 20050628
  Transmission Date: 20060218
  Serious: Yes (Hospitalization)
  Sender: FDA-Public Use
  Company Number: US96061894A

PATIENT
  Age: 47 Year
  Sex: Female
  Weight: 58 kg

DRUGS (6)
  1. HUMALOG [Suspect]
     Indication: DIABETES MELLITUS
  2. HUMULIN R [Suspect]
     Indication: DIABETES MELLITUS
     Dosage: 1.5 U/ 2 DAY
     Dates: start: 19660301
  3. HUMULIN L [Suspect]
     Indication: DIABETES MELLITUS
     Dosage: 10 U/ 1 DAY
     Dates: start: 19960301
  4. PREMARIN [Concomitant]
  5. PROVERA [Concomitant]
  6. ZOVIRAX [Concomitant]

REACTIONS (3)
  - BLOOD GLUCOSE INCREASED [None]
  - DRUG HYPERSENSITIVITY [None]
  - PHARMACEUTICAL PRODUCT COMPLAINT [None]
